FAERS Safety Report 8447320-1 (Version None)
Quarter: 2012Q2

REPORT INFORMATION
  Report Type: 
  Country: None (occurrence: None)
  Receive Date: 20120619
  Receipt Date: 20120613
  Transmission Date: 20120825
  Serious: Yes (Hospitalization)
  Sender: FDA-Public Use
  Company Number: PHHY2010JP59817

PATIENT
  Sex: Male

DRUGS (12)
  1. FAMOTIDINE [Concomitant]
     Indication: PROPHYLAXIS
     Dosage: 40 MG, UNK
     Route: 048
     Dates: start: 20100410
  2. SOLANTAL [Concomitant]
     Dosage: 100 MG, UNK
     Route: 048
     Dates: start: 20101113, end: 20101210
  3. MEPTIN [Concomitant]
     Dosage: 100 UG, UNK
     Route: 048
     Dates: start: 20100410
  4. ONON [Concomitant]
     Dosage: 450 MG, UNK
     Route: 048
     Dates: start: 20100410
  5. PREDNISOLONE [Concomitant]
     Dosage: 5 MG, UNK
     Route: 048
     Dates: start: 20100410
  6. TORSEMIDE [Concomitant]
     Dosage: 8 MG, UNK
     Route: 048
     Dates: start: 20100410
  7. ALEISON [Concomitant]
     Dosage: 20 MG, UNK
     Route: 048
     Dates: start: 20100410, end: 20100819
  8. ALLOPURINOL [Concomitant]
     Dosage: 200 MG, UNK
     Route: 048
     Dates: start: 20100410
  9. URINORM [Concomitant]
     Dosage: 50 MG, UNK
     Route: 048
     Dates: start: 20101015, end: 20101022
  10. TASIGNA [Suspect]
     Indication: CHRONIC MYELOID LEUKAEMIA
     Dosage: 800 MG, DAILY
     Route: 048
     Dates: start: 20100410
  11. THEO-DUR [Concomitant]
     Dosage: 600 MG, UNK
     Dates: start: 20100410
  12. MUCODYNE [Concomitant]
     Dosage: 1000 MG, UNK
     Route: 048
     Dates: start: 20100410

REACTIONS (7)
  - HYPOPHOSPHATAEMIA [None]
  - HAEMOGLOBIN DECREASED [None]
  - PNEUMONIA [None]
  - LIPASE INCREASED [None]
  - EOSINOPHIL COUNT INCREASED [None]
  - HAEMATOCRIT DECREASED [None]
  - BLOOD CREATININE INCREASED [None]
